FAERS Safety Report 8437692-6 (Version None)
Quarter: 2012Q2

REPORT INFORMATION
  Report Type: 
  Country: None (occurrence: None)
  Receive Date: 20120614
  Receipt Date: 20120508
  Transmission Date: 20120825
  Serious: No
  Sender: FDA-Public Use
  Company Number: US-AMGEN-USASP2012020421

PATIENT
  Age: 73 Year
  Sex: Female
  Weight: 62.132 kg

DRUGS (12)
  1. FEOSOL [Concomitant]
  2. B12                                /00056201/ [Concomitant]
  3. PRILOSEC [Concomitant]
  4. OMEPRAZOLE [Concomitant]
  5. CRESTOR [Concomitant]
  6. ZOLOFT [Concomitant]
  7. CALCIUM + VITAMIN D                /01483701/ [Concomitant]
  8. PLAQUENIL [Concomitant]
  9. SERTRALINE HYDROCHLORIDE [Concomitant]
  10. PROLIA [Suspect]
     Indication: OSTEOPOROSIS POSTMENOPAUSAL
     Dosage: 60 MG, Q6MO
     Route: 058
     Dates: start: 20120221
  11. SYNTHROID [Concomitant]
     Dosage: UNK
  12. PREDNISONE TAB [Concomitant]

REACTIONS (6)
  - CANDIDIASIS [None]
  - PAIN IN JAW [None]
  - GLOSSODYNIA [None]
  - GINGIVAL PAIN [None]
  - BURNING MOUTH SYNDROME [None]
  - ORAL PAIN [None]
